FAERS Safety Report 12521370 (Version 1)
Quarter: 2016Q3

REPORT INFORMATION
  Report Type: Spontaneous
  Country: US (occurrence: US)
  Receive Date: 20160701
  Receipt Date: 20160701
  Transmission Date: 20161109
  Serious: No
  Sender: FDA-Public Use
  Company Number: US-009507513-1606USA013382

PATIENT
  Sex: Male

DRUGS (4)
  1. NATEGLINIDE. [Suspect]
     Active Substance: NATEGLINIDE
     Indication: BLOOD GLUCOSE
  2. JANUMET [Suspect]
     Active Substance: METFORMIN HYDROCHLORIDE\SITAGLIPTIN PHOSPHATE
     Indication: BLOOD GLUCOSE
     Route: 048
  3. LEVEMIR [Suspect]
     Active Substance: INSULIN DETEMIR
     Indication: BLOOD GLUCOSE
  4. GLIMEPIRIDE. [Suspect]
     Active Substance: GLIMEPIRIDE
     Indication: BLOOD GLUCOSE

REACTIONS (3)
  - Blood glucose increased [Unknown]
  - Back injury [Unknown]
  - Limb injury [Unknown]
